FAERS Safety Report 5033997-X (Version None)
Quarter: 2006Q2

REPORT INFORMATION
  Report Type: 
  Country: None (occurrence: None)
  Receive Date: 20060512
  Receipt Date: 20051205
  Transmission Date: 20061013
  Serious: Yes (Hospitalization)
  Sender: FDA-Public Use
  Company Number: PHEH2005US13251

PATIENT
  Age: 68 Year
  Sex: Female

DRUGS (2)
  1. HYDRALAZINE(HYDRALAZINE HYDROCHLORIDE) SLOW RELEASE TABLET [Suspect]
     Indication: HYPERTENSION
     Dosage: Q6H, ORAL
     Route: 048
     Dates: start: 20051026, end: 20051027
  2. DARVOCET-N 100 [Concomitant]

REACTIONS (6)
  - DYSPNOEA [None]
  - FEELING ABNORMAL [None]
  - HEADACHE [None]
  - HEART RATE INCREASED [None]
  - NERVOUSNESS [None]
  - TREMOR [None]
